FAERS Safety Report 6482647-4 (Version None)
Quarter: 2009Q4

REPORT INFORMATION
  Report Type: 
  Country: None (occurrence: None)
  Receive Date: 20091209
  Receipt Date: 20091201
  Transmission Date: 20100525
  Serious: Yes (Hospitalization)
  Sender: FDA-Public Use
  Company Number: US-BIOGENIDEC-2009BI034084

PATIENT
  Age: 65 Year
  Sex: Female

DRUGS (3)
  1. AVONEX [Suspect]
     Indication: MULTIPLE SCLEROSIS
     Route: 030
     Dates: start: 20030805
  2. AVONEX [Suspect]
     Route: 030
     Dates: start: 20060313, end: 20090701
  3. AVONEX [Suspect]
     Dates: start: 20090701

REACTIONS (2)
  - NON-SMALL CELL LUNG CANCER [None]
  - PAIN [None]
